FAERS Safety Report 7956824-7 (Version None)
Quarter: 2011Q4

REPORT INFORMATION
  Report Type: 
  Country: None (occurrence: None)
  Receive Date: 20111205
  Receipt Date: 20111020
  Transmission Date: 20120403
  Serious: No
  Sender: FDA-Public Use
  Company Number: US-BAYER-2011-102381

PATIENT
  Age: 45 Year
  Sex: Female
  Weight: 103 kg

DRUGS (3)
  1. NAPROXEN (ALEVE) [Suspect]
     Dosage: 1 DF, TID
     Route: 048
     Dates: end: 20111012
  2. INSULIN [Suspect]
  3. NAPROXEN (ALEVE) [Suspect]
     Indication: ARTHRITIS
     Dosage: 1 DF, TID
     Route: 048
     Dates: end: 20111019

REACTIONS (2)
  - ABDOMINAL PAIN LOWER [None]
  - NO ADVERSE EVENT [None]
